FAERS Safety Report 5511484-X (Version None)
Quarter: 2007Q4

REPORT INFORMATION
  Report Type: 
  Country: None (occurrence: None)
  Receive Date: 20071109
  Receipt Date: 20071105
  Transmission Date: 20080405
  Serious: Yes (Other)
  Sender: FDA-Public Use
  Company Number: A0691446A

PATIENT
  Age: 39 Year
  Sex: Male

DRUGS (14)
  1. ALTABAX [Suspect]
     Indication: IMPETIGO
     Route: 061
     Dates: start: 20071101
  2. VALTREX [Suspect]
     Indication: HERPES ZOSTER
     Dosage: 500MG THREE TIMES PER DAY
     Route: 048
     Dates: start: 20070701
  3. FLAGYL [Concomitant]
  4. VANCOMYCIN [Concomitant]
  5. DEPAKOTE [Concomitant]
  6. COUMADIN [Concomitant]
  7. LASIX [Concomitant]
  8. LEXAPRO [Concomitant]
  9. PEPCID [Concomitant]
  10. BENADRYL [Concomitant]
  11. ATIVAN [Concomitant]
  12. METHADONE HCL [Concomitant]
  13. IMMUNE GLOBULIN INTRAVENOUS (HUMAN) [Concomitant]
     Route: 042
  14. TPN [Concomitant]
     Route: 042

REACTIONS (3)
  - BLISTER [None]
  - HAEMORRHAGE [None]
  - SKIN LESION [None]
